FAERS Safety Report 13903509 (Version 11)
Quarter: 2022Q1

REPORT INFORMATION
  Report Type: Spontaneous
  Country: US (occurrence: US)
  Receive Date: 20170824
  Receipt Date: 20220310
  Transmission Date: 20220423
  Serious: Yes (Other)
  Sender: FDA-Public Use
  Company Number: US-PFIZER INC-2017363415

PATIENT
  Age: 76 Year
  Sex: Female
  Weight: 94 kg

DRUGS (1)
  1. XELJANZ [Suspect]
     Active Substance: TOFACITINIB CITRATE
     Indication: Rheumatoid arthritis
     Dosage: 5 MG, 2X/DAY
     Route: 048

REACTIONS (10)
  - Vaginal haemorrhage [Unknown]
  - Illness [Unknown]
  - Rash [Unknown]
  - Pain [Not Recovered/Not Resolved]
  - Peripheral swelling [Unknown]
  - Cardiac disorder [Unknown]
  - Feeling abnormal [Unknown]
  - Arthritis [Unknown]
  - Gait disturbance [Unknown]
  - Sensitivity to weather change [Unknown]
